FAERS Safety Report 8803626 (Version 1)
Quarter: 2012Q4

REPORT INFORMATION
  Report Type: 
  Country: BE (occurrence: BE)
  Receive Date: 20120924
  Receipt Date: 20120924
  Transmission Date: 20130627
  Serious: Yes (Other)
  Sender: FDA-Public Use
  Company Number: BE-ASTRAZENECA-2012SE72573

PATIENT
  Sex: Female
  Weight: 55 kg

DRUGS (1)
  1. VIMOVO [Suspect]
     Indication: BACK PAIN
     Dosage: 1 DF two times a day
     Route: 048
     Dates: start: 201206, end: 201206

REACTIONS (1)
  - Suicidal ideation [Recovered/Resolved]
